FAERS Safety Report 5445669-8 (Version None)
Quarter: 2007Q3

REPORT INFORMATION
  Report Type: 
  Country: None (occurrence: None)
  Receive Date: 20070906
  Receipt Date: 20070828
  Transmission Date: 20080115
  Serious: Yes (Hospitalization, Other)
  Sender: FDA-Public Use
  Company Number: FR-GILEAD-2007-0013178

PATIENT
  Sex: Male

DRUGS (4)
  1. TRUVADA [Suspect]
     Indication: HIV INFECTION
     Route: 048
     Dates: start: 20070710, end: 20070802
  2. VIREAD [Suspect]
     Indication: HIV INFECTION
     Dates: end: 20060110
  3. VIRAMUNE [Suspect]
     Indication: HIV INFECTION
     Dates: start: 20070710, end: 20070802
  4. EPIVIR [Concomitant]
     Dates: end: 20060110

REACTIONS (7)
  - CYTOLYTIC HEPATITIS [None]
  - HYPOKALAEMIA [None]
  - HYPOPHOSPHATAEMIA [None]
  - NEPHROPATHY TOXIC [None]
  - PRURITUS [None]
  - PYREXIA [None]
  - RASH MACULO-PAPULAR [None]
